FAERS Safety Report 24300206 (Version 2)
Quarter: 2024Q4

REPORT INFORMATION
  Report Type: Spontaneous
  Country: US (occurrence: US)
  Receive Date: 20240909
  Receipt Date: 20241011
  Transmission Date: 20250115
  Serious: No
  Sender: MERCK
  Company Number: US-009507513-2408USA008626

PATIENT
  Sex: Male

DRUGS (7)
  1. KEYTRUDA [Suspect]
     Active Substance: PEMBROLIZUMAB
     Indication: Malignant melanoma
     Dosage: 200 MG EVERY 21 DAYS
     Route: 042
     Dates: end: 202404
  2. METFORMIN [Suspect]
     Active Substance: METFORMIN HYDROCHLORIDE
     Indication: Diabetes mellitus
     Dosage: UNK, QD
  3. LYRICA [Suspect]
     Active Substance: PREGABALIN
  4. GLIPIZIDE [Concomitant]
     Active Substance: GLIPIZIDE
  5. METOPROLOL [Concomitant]
     Active Substance: METOPROLOL
  6. ASPIRIN [Concomitant]
     Active Substance: ASPIRIN
  7. MELOXICAM [Concomitant]
     Active Substance: MELOXICAM

REACTIONS (3)
  - Pruritus [Unknown]
  - Gastrointestinal disorder [Recovered/Resolved]
  - Faeces hard [Unknown]
